FAERS Safety Report 26139737 (Version 1)
Quarter: 2025Q4

REPORT INFORMATION
  Report Type: Report from Study
  Country: US (occurrence: US)
  Receive Date: 20251210
  Receipt Date: 20251210
  Transmission Date: 20260117
  Serious: Yes (Other)
  Sender: ROCHE
  Company Number: US-ROCHE-3563264

PATIENT
  Age: 60 Year
  Sex: Female
  Weight: 67.13 kg

DRUGS (12)
  1. ACTEMRA [Suspect]
     Active Substance: TOCILIZUMAB
     Indication: Rheumatoid arthritis
     Route: 058
     Dates: start: 2021, end: 20220824
  2. RITUXAN [Suspect]
     Active Substance: RITUXIMAB
     Indication: Product used for unknown indication
  3. ACTEMRA [Suspect]
     Active Substance: TOCILIZUMAB
     Indication: Rheumatoid arthritis
     Dosage: STRENGTH: 162 MG/0.9ML
     Route: 058
  4. ACTEMRA [Suspect]
     Active Substance: TOCILIZUMAB
  5. DORZOLAMIDE [Concomitant]
     Active Substance: DORZOLAMIDE
  6. PROLENSA [Concomitant]
     Active Substance: BROMFENAC SODIUM
  7. VITAMIN C [Concomitant]
     Active Substance: ASCORBIC ACID
  8. SUCRALFATE [Concomitant]
     Active Substance: SUCRALFATE
  9. XANAX [Concomitant]
     Active Substance: ALPRAZOLAM
  10. PAROXETINE [Concomitant]
     Active Substance: PAROXETINE
  11. FERROUS SULFATE [Concomitant]
     Active Substance: FERROUS SULFATE
  12. PREDNISONE [Concomitant]
     Active Substance: PREDNISONE

REACTIONS (18)
  - Drug ineffective [Unknown]
  - Tunnel vision [Not Recovered/Not Resolved]
  - Rash [Unknown]
  - Dyspnoea [Unknown]
  - Hand deformity [Unknown]
  - Joint contracture [Unknown]
  - Dysuria [Unknown]
  - Urinary tract infection [Unknown]
  - Infection [Unknown]
  - Corneal graft rejection [Unknown]
  - Synovitis [Unknown]
  - Arthralgia [Unknown]
  - Hypothyroidism [Unknown]
  - Transaminases increased [Unknown]
  - Drug hypersensitivity [Unknown]
  - Muscle spasms [Unknown]
  - Pain in extremity [Unknown]
  - Peripheral swelling [Unknown]
